FAERS Safety Report 15006947 (Version 2)
Quarter: 2019Q3

REPORT INFORMATION
  Report Type: Spontaneous
  Country: HR (occurrence: HR)
  Receive Date: 20180613
  Receipt Date: 20190904
  Transmission Date: 20191004
  Serious: Yes (Death, Other)
  Sender: FDA-Public Use
  Company Number: HR-AMGEN-HRVSP2018078626

PATIENT
  Sex: Female

DRUGS (18)
  1. FOLINIC ACID [Concomitant]
     Active Substance: LEUCOVORIN
     Dosage: UNK UNK, CYCLICAL (3 CYCLES)
     Dates: start: 201712, end: 201801
  2. OXALIPLATIN. [Concomitant]
     Active Substance: OXALIPLATIN
     Indication: ADENOCARCINOMA OF COLON
     Dosage: UNK UNK, CYCLICAL (6 CYCLES)
     Dates: start: 201511, end: 201602
  3. VECTIBIX [Suspect]
     Active Substance: PANITUMUMAB
     Dosage: UNK UNK, CYCLICAL (6 MORE CYCLES)
     Route: 065
     Dates: start: 201602, end: 201605
  4. 5-FU [Concomitant]
     Active Substance: FLUOROURACIL
     Indication: ADENOCARCINOMA OF COLON
     Dosage: UNK UNK, CYCLICAL (6 CYCLES)
     Dates: start: 201511, end: 201602
  5. 5-FU [Concomitant]
     Active Substance: FLUOROURACIL
     Dosage: UNK UNK, CYCLICAL (3 CYCLES)
     Dates: start: 201712, end: 201801
  6. OXALIPLATIN. [Concomitant]
     Active Substance: OXALIPLATIN
     Dosage: UNK UNK, CYCLICAL (3 CYCLES)
     Dates: start: 201712, end: 201801
  7. VECTIBIX [Suspect]
     Active Substance: PANITUMUMAB
     Indication: ADENOCARCINOMA OF COLON
     Dosage: UNK UNK, CYCLICAL (6 CYCLES)
     Route: 065
     Dates: start: 201511, end: 201602
  8. VECTIBIX [Suspect]
     Active Substance: PANITUMUMAB
     Dosage: UNK UNK, CYCLICAL (3 CYCLES)
     Route: 065
     Dates: start: 201801, end: 201803
  9. FOLINIC ACID [Concomitant]
     Active Substance: LEUCOVORIN
     Indication: ADENOCARCINOMA OF COLON
     Dosage: UNK UNK, CYCLICAL ( 6 CYCLES)
     Dates: start: 201511, end: 201602
  10. FOLINIC ACID [Concomitant]
     Active Substance: LEUCOVORIN
     Dosage: UNK UNK, CYCLICAL (6 MORE CYCLES)
     Dates: start: 201602, end: 201605
  11. FOLINIC ACID [Concomitant]
     Active Substance: LEUCOVORIN
     Dosage: UNK UNK, CYCLICAL (3 CYCLES)
     Dates: start: 201801, end: 201803
  12. 5-FU [Concomitant]
     Active Substance: FLUOROURACIL
     Dosage: UNK UNK, CYCLICAL (6 MORE CYCLES)
     Dates: start: 201602, end: 201605
  13. VECTIBIX [Suspect]
     Active Substance: PANITUMUMAB
     Dosage: UNK UNK, CYCLICAL (3 CYCLES)
     Route: 065
     Dates: start: 201712, end: 201801
  14. OXALIPLATIN. [Concomitant]
     Active Substance: OXALIPLATIN
     Dosage: UNK UNK, CYCLICAL (6 MORE CYCLES)
     Dates: start: 201602, end: 201605
  15. VECTIBIX [Suspect]
     Active Substance: PANITUMUMAB
     Dosage: UNK UNK, CYCLICAL (9 CYCLES)
     Route: 065
     Dates: start: 201807, end: 201812
  16. CAPECITABINE. [Concomitant]
     Active Substance: CAPECITABINE
     Indication: ADENOCARCINOMA OF COLON
     Dosage: (2500 MG + 0 + 2000 MG/DAY) 8 CYCLES
     Dates: start: 2017
  17. 5-FU [Concomitant]
     Active Substance: FLUOROURACIL
     Dosage: UNK UNK, CYCLICAL (3 CYCLES)
     Dates: start: 201801, end: 201803
  18. IRINOTECAN [Concomitant]
     Active Substance: IRINOTECAN
     Indication: ADENOCARCINOMA OF COLON
     Dosage: UNK UNK, CYCLICAL (3 CYCLES)
     Dates: start: 201801, end: 201803

REACTIONS (8)
  - Death [Fatal]
  - Malignant neoplasm progression [Unknown]
  - Polyneuropathy [Unknown]
  - Metastases to liver [Unknown]
  - Neuropathy peripheral [Unknown]
  - Neutropenia [Unknown]
  - Metastases to lung [Unknown]
  - Dermatitis acneiform [Recovering/Resolving]

NARRATIVE: CASE EVENT DATE: 2016
